FAERS Safety Report 8154628-6 (Version None)
Quarter: 2012Q1

REPORT INFORMATION
  Report Type: 
  Country: None (occurrence: None)
  Receive Date: 20120221
  Receipt Date: 20120213
  Transmission Date: 20120608
  Serious: Yes (Hospitalization, Other)
  Sender: FDA-Public Use
  Company Number: PHHY2012SA012282

PATIENT
  Age: 86 Year
  Sex: Female

DRUGS (6)
  1. WARFARIN SODIUM [Suspect]
     Indication: ATRIAL FIBRILLATION
     Dosage: 7.5 MG, QD
     Route: 048
  2. WARFARIN SODIUM [Suspect]
  3. ACETYLSALICYLIC ACID SRT [Suspect]
     Dosage: 81 MG, QD
     Route: 048
  4. DILTIAZEM HCL [Concomitant]
     Dosage: 120 MG, QD
     Route: 048
  5. VALSARTAN [Concomitant]
     Dosage: 80 MG, QD
     Route: 048
  6. VITAMIN D [Concomitant]
     Dosage: 10000 IU, QD
     Route: 048

REACTIONS (12)
  - MELAENA [None]
  - HEART RATE INCREASED [None]
  - HYPERHIDROSIS [None]
  - BLOOD PRESSURE DECREASED [None]
  - HAEMOGLOBIN DECREASED [None]
  - DUODENAL ULCER HAEMORRHAGE [None]
  - EPIGASTRIC DISCOMFORT [None]
  - DIZZINESS [None]
  - ASTHENIA [None]
  - INTERNATIONAL NORMALISED RATIO INCREASED [None]
  - FALL [None]
  - BLOOD UREA INCREASED [None]
